FAERS Safety Report 14546343 (Version 2)
Quarter: 2018Q1

REPORT INFORMATION
  Report Type: Spontaneous
  Country: US (occurrence: US)
  Receive Date: 20180219
  Receipt Date: 20180227
  Transmission Date: 20180509
  Serious: No
  Sender: FDA-Public Use
  Company Number: US-ELI_LILLY_AND_COMPANY-US201802002178

PATIENT
  Sex: Female

DRUGS (1)
  1. FORTEO [Suspect]
     Active Substance: TERIPARATIDE
     Indication: PRODUCT USED FOR UNKNOWN INDICATION
     Dosage: 20 UG, DAILY
     Route: 058
     Dates: start: 2017

REACTIONS (5)
  - Bone pain [Unknown]
  - Fatigue [Unknown]
  - Nausea [Unknown]
  - Muscular weakness [Unknown]
  - Fatigue [Unknown]

NARRATIVE: CASE EVENT DATE: 2017
